FAERS Safety Report 7686893-3 (Version None)
Quarter: 2011Q3

REPORT INFORMATION
  Report Type: 
  Country: None (occurrence: None)
  Receive Date: 20110816
  Receipt Date: 20110804
  Transmission Date: 20111222
  Serious: Yes (Other)
  Sender: FDA-Public Use
  Company Number: CA-ELI_LILLY_AND_COMPANY-CA201108001914

PATIENT
  Age: 76 Year
  Sex: Female

DRUGS (11)
  1. FORTEO [Suspect]
     Indication: OSTEOPOROSIS
     Dosage: 20 UG, QD
     Route: 058
     Dates: start: 20110728
  2. LYRICA [Concomitant]
  3. VOLTAREN                                /SCH/ [Concomitant]
  4. CALCIUM CARBONATE [Concomitant]
  5. ASPIRIN [Concomitant]
  6. ALPHAGAN [Concomitant]
  7. PREDNISONE [Concomitant]
  8. FENTANYL [Concomitant]
  9. NEXIUM [Concomitant]
  10. VITAMIN D [Concomitant]
  11. XALATAN [Concomitant]

REACTIONS (5)
  - DYSPNOEA [None]
  - PALPITATIONS [None]
  - HEART RATE INCREASED [None]
  - DIZZINESS [None]
  - DYSGEUSIA [None]
